FAERS Safety Report 20826911 (Version 1)
Quarter: 2022Q2

REPORT INFORMATION
  Report Type: Report from Study
  Country: US (occurrence: US)
  Receive Date: 20220513
  Receipt Date: 20220513
  Transmission Date: 20220721
  Serious: Yes (Other)
  Sender: FDA-Public Use
  Company Number: US-ABBVIE-22K-163-4392027-00

PATIENT
  Sex: Male

DRUGS (1)
  1. RINVOQ [Suspect]
     Active Substance: UPADACITINIB
     Indication: Rheumatoid arthritis
     Dosage: EXTENDED RELEASE
     Route: 048
     Dates: start: 2019, end: 2022

REACTIONS (4)
  - Muscle strain [Unknown]
  - Surgery [Unknown]
  - Osteoarthritis [Unknown]
  - Chondropathy [Unknown]

NARRATIVE: CASE EVENT DATE: 20210101
